FAERS Safety Report 22051068 (Version 1)
Quarter: 2023Q1

REPORT INFORMATION
  Report Type: Spontaneous
  Country: CN (occurrence: None)
  Receive Date: 20230301
  Receipt Date: 20230301
  Transmission Date: 20230417
  Serious: Yes (Disabling)
  Sender: FDA-Public Use
  Company Number: CN-Eisai Medical Research-EC-2023-134796

PATIENT
  Age: 29 Year
  Sex: Female
  Weight: 56 kg

DRUGS (2)
  1. HALAVEN [Suspect]
     Active Substance: ERIBULIN MESYLATE
     Indication: Soft tissue sarcoma
     Route: 041
     Dates: start: 20221215
  2. CATEQUENTINIB DIHYDROCHLORIDE [Suspect]
     Active Substance: CATEQUENTINIB DIHYDROCHLORIDE
     Indication: Soft tissue sarcoma
     Dosage: FREQUENCY UNKNOWN
     Route: 048
     Dates: start: 20221214, end: 20221227

REACTIONS (2)
  - White blood cell count decreased [Recovering/Resolving]
  - Neutrophil count decreased [Recovering/Resolving]

NARRATIVE: CASE EVENT DATE: 20230103
